FAERS Safety Report 4735655-5 (Version None)
Quarter: 2005Q3

REPORT INFORMATION
  Report Type: 
  Country: None (occurrence: None)
  Receive Date: 20050805
  Receipt Date: 20050803
  Transmission Date: 20060218
  Serious: Yes (Other)
  Sender: FDA-Public Use
  Company Number: DE-GLAXOSMITHKLINE-D0047223A

PATIENT

DRUGS (1)
  1. ZOVIRAX [Suspect]
     Route: 042
     Dates: start: 20050101

REACTIONS (1)
  - PARALYSIS [None]
